FAERS Safety Report 5167977-0 (Version None)
Quarter: 2006Q4

REPORT INFORMATION
  Report Type: 
  Country: None (occurrence: None)
  Receive Date: 20061208
  Receipt Date: 20051216
  Transmission Date: 20070319
  Serious: Yes (Hospitalization)
  Sender: FDA-Public Use
  Company Number: US-GLAXOSMITHKLINE-A0586128A

PATIENT
  Sex: Male

DRUGS (3)
  1. AVANDAMET [Suspect]
     Route: 048
  2. ZOCOR [Concomitant]
  3. AVAPRO [Concomitant]

REACTIONS (1)
  - WEIGHT INCREASED [None]
